FAERS Safety Report 9232857 (Version 1)
Quarter: 2013Q2

REPORT INFORMATION
  Report Type: Spontaneous
  Country: US (occurrence: US)
  Receive Date: 20130416
  Receipt Date: 20130416
  Transmission Date: 20140414
  Serious: No
  Sender: FDA-Public Use
  Company Number: US-JNJFOC-20130404850

PATIENT
  Age: 30 Year
  Sex: Male
  Weight: 168.74 kg

DRUGS (7)
  1. PALIPERIDONE PALMITATE [Suspect]
     Indication: SCHIZOPHRENIA
     Route: 030
     Dates: start: 201303
  2. PALIPERIDONE PALMITATE [Suspect]
     Indication: SCHIZOPHRENIA
     Route: 030
     Dates: start: 2010, end: 2010
  3. INVEGA [Suspect]
     Indication: SCHIZOPHRENIA
     Route: 048
     Dates: start: 201303
  4. INVEGA [Suspect]
     Indication: SCHIZOPHRENIA
     Route: 048
     Dates: start: 2010
  5. INVEGA [Suspect]
     Indication: SCHIZOPHRENIA
     Route: 048
     Dates: end: 201303
  6. DEPAKOTE [Concomitant]
     Indication: SCHIZOPHRENIA
     Route: 048
     Dates: start: 20130306, end: 20130321
  7. DEPAKOTE [Concomitant]
     Indication: SCHIZOPHRENIA
     Route: 048
     Dates: start: 20130323

REACTIONS (7)
  - Schizophrenia [Unknown]
  - Drug ineffective [Recovered/Resolved]
  - Paraesthesia [Recovered/Resolved]
  - Inappropriate schedule of drug administration [Not Recovered/Not Resolved]
  - Underdose [Not Recovered/Not Resolved]
  - Accidental exposure to product [Recovered/Resolved]
  - Wrong technique in drug usage process [Unknown]
